FAERS Safety Report 20527693 (Version 1)
Quarter: 2022Q1

REPORT INFORMATION
  Report Type: Spontaneous
  Country: US (occurrence: US)
  Receive Date: 20220228
  Receipt Date: 20220228
  Transmission Date: 20220423
  Serious: No
  Sender: FDA-Public Use
  Company Number: US-PERRIGO-22US000918

PATIENT
  Age: 59 Year
  Sex: Female
  Weight: 90.703 kg

DRUGS (9)
  1. ESTRADIOL [Suspect]
     Active Substance: ESTRADIOL
     Indication: Hormone replacement therapy
     Dosage: 1 GRAM, 3X PER WEEK
     Route: 067
     Dates: start: 20210901, end: 20211031
  2. ESTRADIOL [Suspect]
     Active Substance: ESTRADIOL
     Dosage: 1 GRAM, 3X PER WEEK
     Route: 067
     Dates: start: 20211116
  3. CELEBREX [Concomitant]
     Active Substance: CELECOXIB
     Indication: Arthritis
     Dosage: 200 MG
     Route: 065
     Dates: start: 2009
  4. SYNTHROID [Concomitant]
     Active Substance: LEVOTHYROXINE SODIUM
     Indication: Hypothyroidism
     Dosage: UNK
     Route: 065
  5. SENSIPAR [Concomitant]
     Active Substance: CINACALCET HYDROCHLORIDE
     Indication: Hyperparathyroidism
     Dosage: UNK
     Route: 065
  6. HYDROCHLOROTHIAZIDE\TRIAMTERENE [Concomitant]
     Active Substance: HYDROCHLOROTHIAZIDE\TRIAMTERENE
     Indication: Routine health maintenance
     Dosage: UNK
     Route: 065
  7. METOPROLOL [Concomitant]
     Active Substance: METOPROLOL
     Indication: Heart rate irregular
     Dosage: UNK
     Route: 065
     Dates: start: 2016
  8. PANTOPRAZOLE [Concomitant]
     Active Substance: PANTOPRAZOLE
     Indication: Gastrooesophageal reflux disease
     Dosage: UNK
     Dates: start: 2019
  9. SACROSIDASE [Concomitant]
     Active Substance: SACROSIDASE
     Indication: Sucrose intolerance
     Dosage: UNK
     Route: 065
     Dates: start: 2019

REACTIONS (2)
  - Therapy interrupted [Recovered/Resolved]
  - Off label use [Not Recovered/Not Resolved]

NARRATIVE: CASE EVENT DATE: 20210901
